FAERS Safety Report 6085854-8 (Version None)
Quarter: 2009Q1

REPORT INFORMATION
  Report Type: 
  Country: None (occurrence: None)
  Receive Date: 20090220
  Receipt Date: 20090211
  Transmission Date: 20090719
  Serious: Yes (Hospitalization)
  Sender: FDA-Public Use
  Company Number: B0558776A

PATIENT
  Age: 22 Year
  Sex: Female

DRUGS (2)
  1. COMBIVIR [Suspect]
     Route: 048
     Dates: start: 20081116, end: 20081129
  2. KALETRA [Suspect]
     Route: 048
     Dates: start: 20081116, end: 20081129

REACTIONS (6)
  - LYMPHADENOPATHY [None]
  - NORMOCHROMIC NORMOCYTIC ANAEMIA [None]
  - RASH MACULO-PAPULAR [None]
  - RASH PRURITIC [None]
  - THROMBOCYTOPENIA [None]
  - TRANSAMINASES INCREASED [None]
